FAERS Safety Report 6927457-6 (Version None)
Quarter: 2010Q3

REPORT INFORMATION
  Report Type: 
  Country: None (occurrence: None)
  Receive Date: 20100812
  Receipt Date: 20100802
  Transmission Date: 20110219
  Serious: Yes (Other)
  Sender: FDA-Public Use
  Company Number: AUR-APL-2010-01938

PATIENT
  Age: 43 Year
  Sex: Female

DRUGS (2)
  1. RIBAVIRIN [Suspect]
     Indication: HEPATITIS C
     Dosage: 1200MG, DAILY
  2. PEGYLATED INTERFERON ALFA-2A [Suspect]
     Indication: HEPATITIS C
     Dosage: 180UG WEEKLY

REACTIONS (9)
  - ALANINE AMINOTRANSFERASE INCREASED [None]
  - ASPARTATE AMINOTRANSFERASE INCREASED [None]
  - BLISTER [None]
  - INJECTION SITE RASH [None]
  - PLATELET COUNT DECREASED [None]
  - RASH PAPULAR [None]
  - RASH PRURITIC [None]
  - RED BLOOD CELL COUNT DECREASED [None]
  - WHITE BLOOD CELL COUNT DECREASED [None]
